FAERS Safety Report 12468214 (Version 2)
Quarter: 2016Q3

REPORT INFORMATION
  Report Type: Report from Study
  Country: NL (occurrence: NL)
  Receive Date: 20160615
  Receipt Date: 20160804
  Transmission Date: 20161109
  Serious: Yes (Hospitalization, Other)
  Sender: FDA-Public Use
  Company Number: PHHY2016NL081859

PATIENT
  Age: 74 Year
  Sex: Male

DRUGS (5)
  1. PERSANTINE [Concomitant]
     Active Substance: DIPYRIDAMOLE
     Indication: PRODUCT USED FOR UNKNOWN INDICATION
     Dosage: 200 MG, BID
     Route: 065
  2. ZOMETA [Suspect]
     Active Substance: ZOLEDRONIC ACID
     Indication: HORMONE-DEPENDENT PROSTATE CANCER
     Dosage: 1 DF, QMO EVERY 4 WEEKS
     Route: 042
     Dates: start: 20150518
  3. ELIGARD [Concomitant]
     Active Substance: LEUPROLIDE ACETATE
     Indication: PRODUCT USED FOR UNKNOWN INDICATION
     Dosage: 45 MG, EVERY HALF A YEAR
     Route: 065
     Dates: start: 2010
  4. ASA [Concomitant]
     Active Substance: ASPIRIN
     Indication: PRODUCT USED FOR UNKNOWN INDICATION
     Dosage: 80 MG, QD
     Route: 065
  5. SIMVASTATINE [Concomitant]
     Active Substance: SIMVASTATIN
     Indication: PRODUCT USED FOR UNKNOWN INDICATION
     Dosage: 40 MG, QD
     Route: 065

REACTIONS (7)
  - Sepsis [Recovered/Resolved]
  - Urinary tract infection [Unknown]
  - Hormone-dependent prostate cancer [Unknown]
  - Urinary tract obstruction [Unknown]
  - Citrobacter infection [Unknown]
  - Urosepsis [Unknown]
  - Malignant neoplasm progression [Unknown]

NARRATIVE: CASE EVENT DATE: 20160523
